FAERS Safety Report 7363699-6 (Version None)
Quarter: 2011Q1

REPORT INFORMATION
  Report Type: 
  Country: None (occurrence: None)
  Receive Date: 20110321
  Receipt Date: 20110120
  Transmission Date: 20110831
  Serious: No
  Sender: FDA-Public Use
  Company Number: A0908043A

PATIENT
  Age: 65 Year
  Sex: Male
  Weight: 119.1 kg

DRUGS (5)
  1. METOPROLOL [Concomitant]
  2. LIPITOR [Concomitant]
  3. ASPIRIN [Concomitant]
  4. PROMACTA [Suspect]
     Indication: IDIOPATHIC THROMBOCYTOPENIC PURPURA
     Dosage: 50MG PER DAY
     Route: 048
  5. UNKNOWN [Concomitant]

REACTIONS (3)
  - PLATELET COUNT INCREASED [None]
  - SPLENECTOMY [None]
  - INCORRECT DOSE ADMINISTERED [None]
